FAERS Safety Report 9019406 (Version 1)
Quarter: 2013Q1

REPORT INFORMATION
  Report Type: Spontaneous
  Country: US (occurrence: US)
  Receive Date: 20130118
  Receipt Date: 20130118
  Transmission Date: 20140127
  Serious: Yes (Other)
  Sender: FDA-Public Use
  Company Number: US-TEVA-381229USA

PATIENT
  Sex: 0

DRUGS (1)
  1. LOSARTAN [Suspect]
     Route: 048

REACTIONS (2)
  - Coeliac disease [Unknown]
  - Weight decreased [Unknown]
